FAERS Safety Report 6858742-4 (Version None)
Quarter: 2010Q3

REPORT INFORMATION
  Report Type: 
  Country: None (occurrence: None)
  Receive Date: 20100719
  Receipt Date: 20080214
  Transmission Date: 20110219
  Serious: No
  Sender: FDA-Public Use
  Company Number: US-PFIZER INC-2008014305

PATIENT
  Sex: Female
  Weight: 68.2 kg

DRUGS (1)
  1. CHANTIX [Suspect]
     Dates: start: 20080118, end: 20080208

REACTIONS (4)
  - DIARRHOEA [None]
  - FLATULENCE [None]
  - MUSCLE TWITCHING [None]
  - NAUSEA [None]
